FAERS Safety Report 7159171-9 (Version None)
Quarter: 2010Q4

REPORT INFORMATION
  Report Type: 
  Country: None (occurrence: None)
  Receive Date: 20101214
  Receipt Date: 20101203
  Transmission Date: 20110411
  Serious: Yes (Other)
  Sender: FDA-Public Use
  Company Number: US-SANOFI-AVENTIS-2010SA066867

PATIENT
  Age: 65 Year
  Sex: Female

DRUGS (2)
  1. LANTUS [Suspect]
     Indication: TYPE 2 DIABETES MELLITUS
     Dosage: 40-50 UNITS
     Dates: start: 20100301
  2. LANTUS [Suspect]
     Indication: TYPE 2 DIABETES MELLITUS
     Dosage: 40-50 UNITS
     Route: 058
     Dates: start: 20100301

REACTIONS (3)
  - INJECTION SITE HAEMATOMA [None]
  - MACULAR DEGENERATION [None]
  - PRODUCT QUALITY ISSUE [None]
